FAERS Safety Report 8498342-6 (Version None)
Quarter: 2012Q3

REPORT INFORMATION
  Report Type: 
  Country: None (occurrence: None)
  Receive Date: 20120709
  Receipt Date: 20120621
  Transmission Date: 20120928
  Serious: No
  Sender: FDA-Public Use
  Company Number: US-AMGEN-USASP2012038582

PATIENT
  Age: 58 Year
  Sex: Male

DRUGS (1)
  1. ENBREL [Suspect]
     Indication: PSORIATIC ARTHROPATHY
     Dosage: 50 MG, QWK
     Dates: start: 20050418

REACTIONS (7)
  - DRUG HYPERSENSITIVITY [None]
  - PRURITUS GENERALISED [None]
  - DENTAL CARIES [None]
  - SWELLING FACE [None]
  - ERYTHEMA [None]
  - FATIGUE [None]
  - EAR INFECTION [None]
